FAERS Safety Report 18564974 (Version 1)
Quarter: 2020Q4

REPORT INFORMATION
  Report Type: Spontaneous
  Country: US (occurrence: US)
  Receive Date: 20201201
  Receipt Date: 20201201
  Transmission Date: 20210114
  Serious: No
  Sender: FDA-Public Use
  Company Number: US-ASTRAZENECA-2020SF58936

PATIENT

DRUGS (1)
  1. RHINOCORT ALLERGY [Suspect]
     Active Substance: BUDESONIDE
     Indication: HYPERSENSITIVITY
     Route: 065

REACTIONS (2)
  - Hypersensitivity [Unknown]
  - Drug ineffective [Unknown]
